FAERS Safety Report 8921417 (Version 3)
Quarter: 2013Q4

REPORT INFORMATION
  Report Type: Spontaneous
  Country: GB (occurrence: GB)
  Receive Date: 20121122
  Receipt Date: 20131001
  Transmission Date: 20140711
  Serious: Yes (Death, Life-Threatening, Hospitalization, Other)
  Sender: FDA-Public Use
  Company Number: GB-AMGEN-GBRSP2012074668

PATIENT
  Age: 78 Year
  Sex: Female
  Weight: 50.8 kg

DRUGS (11)
  1. ENBREL [Suspect]
     Indication: RHEUMATOID ARTHRITIS
     Dosage: 50 MG, WEEKLY
     Route: 058
     Dates: start: 20120913, end: 20121018
  2. METHOTREXATE SODIUM [Suspect]
     Indication: RHEUMATOID ARTHRITIS
     Dosage: 25 MG, UNK
     Route: 058
     Dates: start: 20101111, end: 20121018
  3. CALCICHEW-D3 [Concomitant]
     Dosage: UNK UNK, UNK
  4. ALENDRONIC ACID [Concomitant]
     Dosage: UNK UNK, UNK
  5. PREDNISOLONE [Concomitant]
     Dosage: UNK
  6. METHYLPREDNISOLONE [Concomitant]
     Dosage: UNK
  7. NYSTATIN [Concomitant]
     Dosage: UNK
  8. FUROSEMIDE [Concomitant]
     Dosage: UNK
  9. ORAMORPH [Concomitant]
     Dosage: UNK
  10. PARACETAMOL [Concomitant]
     Dosage: UNK
  11. DIHYDROCODEINE PHOSPHATE [Concomitant]
     Dosage: UNK

REACTIONS (5)
  - Pneumonitis [Fatal]
  - Influenza like illness [Not Recovered/Not Resolved]
  - Dyspnoea [Not Recovered/Not Resolved]
  - Alveolitis [Not Recovered/Not Resolved]
  - Pneumocystis jirovecii pneumonia [Not Recovered/Not Resolved]
